FAERS Safety Report 4976247-2 (Version None)
Quarter: 2006Q2

REPORT INFORMATION
  Report Type: 
  Country: None (occurrence: None)
  Receive Date: 20060412
  Receipt Date: 20060331
  Transmission Date: 20061013
  Serious: Yes (Death)
  Sender: FDA-Public Use
  Company Number: 2006-00598

PATIENT
  Age: 76 Year
  Sex: Female

DRUGS (6)
  1. VELCADE [Suspect]
     Indication: MULTIPLE MYELOMA
     Dates: end: 20060207
  2. OMEPRAZOLE [Concomitant]
  3. LACTULOSE [Concomitant]
  4. CO-CODAMOL (CODEINE PHOSPHATE, PARACETAMOL) [Concomitant]
  5. SANDOCAL              (COLECALCIFEROL, SODIUM, CALCIUM CARBONATE) [Concomitant]
  6. CLODRONATE DISODIUM [Concomitant]

REACTIONS (4)
  - GASTROINTESTINAL HAEMORRHAGE [None]
  - MULTIPLE MYELOMA [None]
  - NEOPLASM RECURRENCE [None]
  - PLATELET COUNT DECREASED [None]
